FAERS Safety Report 7076719-3 (Version None)
Quarter: 2010Q4

REPORT INFORMATION
  Report Type: 
  Country: None (occurrence: None)
  Receive Date: 20101101
  Receipt Date: 20101025
  Transmission Date: 20110411
  Serious: Yes (Death)
  Sender: FDA-Public Use
  Company Number: JP-BAYER-201014587BYL

PATIENT
  Age: 47 Year
  Sex: Male
  Weight: 60 kg

DRUGS (6)
  1. NEXAVAR [Suspect]
     Indication: HEPATIC NEOPLASM MALIGNANT
     Dosage: TOTAL DAILY DOSE: 800 MG  UNIT DOSE: 200 MG
     Route: 048
     Dates: start: 20100824, end: 20100908
  2. NEXAVAR [Suspect]
     Dosage: UNIT DOSE: 200 MG
     Route: 048
     Dates: start: 20100917, end: 20101018
  3. DIHYDROCODEINE BITARTRATE INJ [Concomitant]
     Indication: ASTHMA
     Dosage: UNIT DOSE: 5 MG
     Route: 048
     Dates: start: 20100717
  4. ACINON [Concomitant]
     Indication: GASTRIC ULCER
     Dosage: UNIT DOSE: 150 MG
     Route: 048
     Dates: start: 20100722
  5. URSO 250 [Concomitant]
     Indication: CHRONIC HEPATITIS
     Dosage: UNIT DOSE: 100 MG
     Route: 048
     Dates: start: 20100722
  6. MAGMITT [Concomitant]
     Indication: CONSTIPATION
     Dosage: UNIT DOSE: 330 MG
     Route: 048
     Dates: start: 20100722

REACTIONS (4)
  - ASTHMA [None]
  - HEPATIC NEOPLASM MALIGNANT [None]
  - LIVER CARCINOMA RUPTURED [None]
  - URTICARIA [None]
